FAERS Safety Report 7275564-3 (Version None)
Quarter: 2011Q1

REPORT INFORMATION
  Report Type: 
  Country: None (occurrence: None)
  Receive Date: 20110204
  Receipt Date: 20110128
  Transmission Date: 20110831
  Serious: Yes (Death)
  Sender: FDA-Public Use
  Company Number: US-CELGENEUS-163-21880-11010873

PATIENT
  Sex: Male

DRUGS (14)
  1. REVLIMID [Suspect]
     Indication: MULTIPLE MYELOMA
     Route: 048
     Dates: start: 20100601
  2. CALCIUM [Concomitant]
     Route: 065
  3. REVLIMID [Suspect]
     Route: 048
     Dates: start: 20101201
  4. FOLATE [Concomitant]
     Route: 065
  5. LOPRESSOR [Concomitant]
     Route: 065
  6. VALTREX [Concomitant]
     Route: 065
  7. CATAPRES [Concomitant]
     Route: 065
  8. REVLIMID [Suspect]
     Route: 048
     Dates: start: 20100901
  9. FISH OIL [Concomitant]
     Route: 065
  10. FOSRENOL [Concomitant]
     Route: 065
  11. VITAMIN D [Concomitant]
     Route: 065
  12. XANAX [Concomitant]
     Indication: ANXIETY
     Route: 065
  13. DARVOCET-N 100 [Concomitant]
     Indication: PAIN
     Route: 065
  14. OMEPRAZOLE [Concomitant]
     Route: 065

REACTIONS (2)
  - CEREBROVASCULAR ACCIDENT [None]
  - CARDIAC FAILURE CONGESTIVE [None]
